FAERS Safety Report 15989033 (Version 1)
Quarter: 2019Q1

REPORT INFORMATION
  Report Type: Spontaneous
  Country: DE (occurrence: DE)
  Receive Date: 20190221
  Receipt Date: 20190221
  Transmission Date: 20190418
  Serious: Yes (Hospitalization)
  Sender: FDA-Public Use
  Company Number: DE-AUROBINDO-AUR-APL-2019-008325

PATIENT

DRUGS (2)
  1. VENLAFAXINE PROLONGED RELEASE CAPSULES HARD 37.5MG [Suspect]
     Active Substance: VENLAFAXINE HYDROCHLORIDE
     Dosage: 75 MILLIGRAM, ONCE A DAY
     Route: 065
  2. VENLAFAXINE PROLONGED RELEASE CAPSULES HARD 37.5MG [Suspect]
     Active Substance: VENLAFAXINE HYDROCHLORIDE
     Indication: PRODUCT USED FOR UNKNOWN INDICATION
     Dosage: 38 MILLIGRAM, ONCE A DAY
     Route: 065

REACTIONS (3)
  - Dizziness [Unknown]
  - Fall [Unknown]
  - Skin abrasion [None]
